FAERS Safety Report 18363762 (Version 1)
Quarter: 2020Q4

REPORT INFORMATION
  Report Type: Report from Study
  Country: JP (occurrence: JP)
  Receive Date: 20201009
  Receipt Date: 20201009
  Transmission Date: 20210114
  Serious: Yes (Other)
  Sender: FDA-Public Use
  Company Number: JP-JNJFOC-A-CH2018-168243

PATIENT
  Age: 11 Year
  Sex: Male

DRUGS (10)
  1. ARTIST [Concomitant]
     Active Substance: CARVEDILOL
  2. FUROSEMIDE. [Concomitant]
     Active Substance: FUROSEMIDE
  3. ADCIRCA [Concomitant]
     Active Substance: TADALAFIL
  4. OXYGEN. [Concomitant]
     Active Substance: OXYGEN
  5. OPSUMIT [Suspect]
     Active Substance: MACITENTAN
     Indication: PULMONARY ARTERIAL HYPERTENSION
     Dosage: 4.8 MG, OD
     Route: 048
     Dates: start: 20171021
  6. ASPIRIN. [Concomitant]
     Active Substance: ASPIRIN
  7. ENALAPRIL [Concomitant]
     Active Substance: ENALAPRIL
  8. SAMSCA [Concomitant]
     Active Substance: TOLVAPTAN
  9. ALDACTONE A [Concomitant]
     Active Substance: SPIRONOLACTONE
  10. WARFARIN [Concomitant]
     Active Substance: WARFARIN

REACTIONS (3)
  - Off label use [Unknown]
  - Transfusion [Unknown]
  - Anaemia [Recovered/Resolved]

NARRATIVE: CASE EVENT DATE: 20171028
